FAERS Safety Report 7795028-8 (Version None)
Quarter: 2011Q4

REPORT INFORMATION
  Report Type: 
  Country: None (occurrence: None)
  Receive Date: 20111004
  Receipt Date: 20111003
  Transmission Date: 20120403
  Serious: Yes (Hospitalization, Disabling)
  Sender: FDA-Public Use
  Company Number: PHHY2011US46961

PATIENT
  Sex: Female
  Weight: 72 kg

DRUGS (3)
  1. EXJADE [Suspect]
     Dosage: 2750 MG, DAILY
     Route: 048
     Dates: start: 20090506
  2. EXJADE [Suspect]
     Indication: SICKLE CELL ANAEMIA
     Dosage: 2750 MG, QD
     Route: 048
     Dates: start: 20060214
  3. DILAUDID [Concomitant]
     Indication: PAIN

REACTIONS (3)
  - PAIN [None]
  - SICKLE CELL ANAEMIA WITH CRISIS [None]
  - CENTRAL NERVOUS SYSTEM INFECTION [None]
